FAERS Safety Report 17062633 (Version 4)
Quarter: 2020Q1

REPORT INFORMATION
  Report Type: Spontaneous
  Country: US (occurrence: US)
  Receive Date: 20191122
  Receipt Date: 20200206
  Transmission Date: 20200409
  Serious: Yes (Hospitalization, Other)
  Sender: FDA-Public Use
  Company Number: US-HORIZON-ACT-0316-2019

PATIENT
  Age: 33 Year
  Sex: Male

DRUGS (1)
  1. ACTIMMUNE [Suspect]
     Active Substance: INTERFERON GAMMA-1B
     Indication: OSTEOPETROSIS
     Dosage: 0.15ML (30?G) THREE TIMES WEEKLY
     Route: 058
     Dates: start: 201506

REACTIONS (10)
  - Osteomyelitis [Not Recovered/Not Resolved]
  - Intentional dose omission [Unknown]
  - Jaw fracture [Unknown]
  - Pain [Unknown]
  - Malaise [Unknown]
  - Pain in jaw [Unknown]
  - Lymphadenopathy [Unknown]
  - Jaw operation [Unknown]
  - Malaise [Unknown]
  - Ill-defined disorder [Unknown]

NARRATIVE: CASE EVENT DATE: 2019
